FAERS Safety Report 18759479 (Version 1)
Quarter: 2021Q1

REPORT INFORMATION
  Report Type: Spontaneous
  Country: US (occurrence: US)
  Receive Date: 20210119
  Receipt Date: 20210119
  Transmission Date: 20210419
  Serious: No
  Sender: FDA-Public Use
  Company Number: US-PFIZER INC-2021026741

PATIENT
  Sex: Female

DRUGS (2)
  1. TYLENOL [Suspect]
     Active Substance: ACETAMINOPHEN
     Indication: HEADACHE
     Dosage: UNK
     Dates: start: 202101
  2. IBUPROFEN. [Suspect]
     Active Substance: IBUPROFEN
     Indication: HEADACHE
     Dosage: UNK
     Dates: start: 202101

REACTIONS (1)
  - Drug ineffective [Unknown]

NARRATIVE: CASE EVENT DATE: 202101
